FAERS Safety Report 23517640 (Version 1)
Quarter: 2024Q1

REPORT INFORMATION
  Report Type: Spontaneous
  Country: GB (occurrence: GB)
  Receive Date: 20240213
  Receipt Date: 20240213
  Transmission Date: 20240410
  Serious: Yes (Disabling)
  Sender: FDA-Public Use
  Company Number: None

PATIENT

DRUGS (7)
  1. PREDNISOLONE [Suspect]
     Active Substance: PREDNISOLONE
     Dosage: 5 MG (TABLET)
     Route: 048
     Dates: start: 20240126, end: 20240131
  2. CLARITHROMYCIN [Concomitant]
     Active Substance: CLARITHROMYCIN
     Dosage: 1 DOSAGE FORM, BID
     Dates: start: 20240126
  3. BECLOMETHASONE DIPROPIONATE [Concomitant]
     Active Substance: BECLOMETHASONE DIPROPIONATE
     Dosage: 2 DOSAGE FORM, EVERY 2 DAYS
     Route: 055
     Dates: start: 20230415
  4. DOSULEPIN HYDROCHLORIDE [Concomitant]
     Active Substance: DOTHIEPIN HYDROCHLORIDE
     Dosage: 6 DOSAGE FORM, QD (AT NIGHT)
     Dates: start: 20230415
  5. BECLOMETHASONE\FORMOTEROL [Concomitant]
     Active Substance: BECLOMETHASONE\FORMOTEROL
     Indication: Asthma
     Dosage: 1 DOSAGE FORM, BID
     Route: 055
     Dates: start: 20231212
  6. NYSTATIN [Concomitant]
     Active Substance: NYSTATIN
     Dosage: 1 ML, QID (FOR 7 DAYS)
     Dates: start: 20240109, end: 20240116
  7. ALBUTEROL [Concomitant]
     Active Substance: ALBUTEROL
     Dosage: UNK, PRN (2 PUFFS EVERY 4 TO 6 HOURS AS REQUIRED)
     Dates: start: 20230415

REACTIONS (3)
  - Palpitations [Recovered/Resolved]
  - Dry mouth [Unknown]
  - Insomnia [Unknown]

NARRATIVE: CASE EVENT DATE: 20240130
